FAERS Safety Report 8133709-7 (Version None)
Quarter: 2012Q1

REPORT INFORMATION
  Report Type: 
  Country: None (occurrence: None)
  Receive Date: 20120213
  Receipt Date: 20120203
  Transmission Date: 20120608
  Serious: Yes (Life-Threatening, Hospitalization)
  Sender: FDA-Public Use
  Company Number: ES-ABBOTT-12P-144-0900876-00

PATIENT
  Age: 67 Year
  Sex: Female

DRUGS (12)
  1. FOLIC ACID [Concomitant]
     Indication: PRODUCT USED FOR UNKNOWN INDICATION
  2. CALCIUM ACETATE [Suspect]
     Indication: PRODUCT USED FOR UNKNOWN INDICATION
     Route: 048
     Dates: start: 20111101, end: 20120109
  3. ATENOLOL [Concomitant]
     Indication: PRODUCT USED FOR UNKNOWN INDICATION
  4. OMEPRAZOLE [Concomitant]
     Indication: PRODUCT USED FOR UNKNOWN INDICATION
  5. MANIDIPINE [Concomitant]
     Indication: PRODUCT USED FOR UNKNOWN INDICATION
  6. DOXAZOSIN [Concomitant]
     Indication: PRODUCT USED FOR UNKNOWN INDICATION
  7. ALPRAZOLAM [Concomitant]
     Indication: PRODUCT USED FOR UNKNOWN INDICATION
  8. ZEMPLAR [Suspect]
     Indication: RENAL FAILURE CHRONIC
     Route: 048
     Dates: end: 20120109
  9. EPOETIN [Suspect]
     Indication: PRODUCT USED FOR UNKNOWN INDICATION
  10. IRON [Concomitant]
     Indication: PRODUCT USED FOR UNKNOWN INDICATION
  11. FENOFIBRATE [Concomitant]
     Indication: PRODUCT USED FOR UNKNOWN INDICATION
  12. LANTHANUM CARBONATE [Suspect]
     Indication: PRODUCT USED FOR UNKNOWN INDICATION
     Route: 048
     Dates: end: 20120109

REACTIONS (2)
  - HYPERCALCAEMIA [None]
  - CONFUSIONAL STATE [None]
